FAERS Safety Report 9550522 (Version 1)
Quarter: 2013Q3

REPORT INFORMATION
  Report Type: Spontaneous
  Country: US (occurrence: US)
  Receive Date: 20130924
  Receipt Date: 20130924
  Transmission Date: 20140515
  Serious: No
  Sender: FDA-Public Use
  Company Number: US-SANOFI-AVENTIS-2013SA029197

PATIENT
  Age: 58 Year
  Sex: Female
  Weight: 87.54 kg

DRUGS (10)
  1. AUBAGIO [Suspect]
     Indication: MULTIPLE SCLEROSIS
     Route: 048
     Dates: start: 20130312
  2. AUBAGIO [Suspect]
     Indication: MULTIPLE SCLEROSIS
     Route: 048
     Dates: start: 20130312
  3. MELOXICAM [Concomitant]
     Indication: ARTHRITIS
  4. NEURONTIN [Concomitant]
     Indication: MYALGIA
  5. HYDROCODONE [Concomitant]
     Indication: PAIN
  6. RIBOFLAVIN [Concomitant]
  7. VITAMIN D [Concomitant]
  8. CYANOCOBALAMIN [Concomitant]
  9. BIOTIN [Concomitant]
  10. OMEGA 3 [Concomitant]

REACTIONS (7)
  - Chills [Recovered/Resolved]
  - Throat irritation [Not Recovered/Not Resolved]
  - Seasonal allergy [Not Recovered/Not Resolved]
  - Pain in extremity [Recovered/Resolved]
  - Burning sensation [Recovered/Resolved]
  - Hypoaesthesia [Recovered/Resolved]
  - Alopecia [Not Recovered/Not Resolved]
